FAERS Safety Report 9753899 (Version 2)
Quarter: 2013Q4

REPORT INFORMATION
  Report Type: Spontaneous
  Country: US (occurrence: US)
  Receive Date: 20131213
  Receipt Date: 20131213
  Transmission Date: 20140711
  Serious: No
  Sender: FDA-Public Use
  Company Number: US-GILEAD-2010-0027050

PATIENT
  Sex: Male
  Weight: 72.57 kg

DRUGS (18)
  1. LETAIRIS [Suspect]
     Indication: PULMONARY ARTERIAL HYPERTENSION
     Route: 048
     Dates: start: 20100127
  2. FLOLAN [Concomitant]
  3. FLOLAN DILUENT [Concomitant]
  4. WARFARIN [Concomitant]
  5. FUROSEMIDE [Concomitant]
  6. METOPROLOL [Concomitant]
  7. OXYGEN [Concomitant]
  8. FOLIC ACID [Concomitant]
  9. ALPRAZOLAM [Concomitant]
  10. NASONEX [Concomitant]
  11. OXYCODONE [Concomitant]
  12. MULTIVITAMIN [Concomitant]
  13. LOPERAMIDE [Concomitant]
  14. CALCIUM CITRATE [Concomitant]
  15. BISACODYL [Concomitant]
  16. ASPIRIN LOW DOSE [Concomitant]
  17. OMEPRAZOLE [Concomitant]
  18. SODIUM CHLORIDE [Concomitant]

REACTIONS (2)
  - Tremor [Unknown]
  - Hypotension [Unknown]
